FAERS Safety Report 8562356-8 (Version None)
Quarter: 2012Q3

REPORT INFORMATION
  Report Type: 
  Country: None (occurrence: None)
  Receive Date: 20120802
  Receipt Date: 20120713
  Transmission Date: 20120928
  Serious: No
  Sender: FDA-Public Use
  Company Number: US-AMGEN-USASP2012043658

PATIENT
  Age: 3 Year
  Sex: Female

DRUGS (1)
  1. ENBREL [Suspect]
     Indication: JUVENILE ARTHRITIS
     Dosage: 0.8 ML, QWK
     Dates: start: 20090707

REACTIONS (3)
  - UNEVALUABLE EVENT [None]
  - INJECTION SITE HAEMATOMA [None]
  - INJECTION SITE DISCOMFORT [None]
